FAERS Safety Report 19147115 (Version 3)
Quarter: 2021Q2

REPORT INFORMATION
  Report Type: Spontaneous
  Country: JP (occurrence: JP)
  Receive Date: 20210416
  Receipt Date: 20210622
  Transmission Date: 20210717
  Serious: Yes (Death, Life-Threatening, Other)
  Sender: FDA-Public Use
  Company Number: JP-BAYER-2021-122104

PATIENT
  Age: 82 Year
  Sex: Male
  Weight: 53 kg

DRUGS (4)
  1. XOFIGO [Suspect]
     Active Substance: RADIUM RA-223 DICHLORIDE
     Indication: METASTASES TO BONE
     Dosage: 55KBQ/KG ONCE
     Route: 042
     Dates: start: 20170620, end: 20170620
  2. XOFIGO [Suspect]
     Active Substance: RADIUM RA-223 DICHLORIDE
     Indication: HORMONE-REFRACTORY PROSTATE CANCER
     Dosage: 55KBQ/KG ONCE
     Route: 042
     Dates: start: 20170718, end: 20170718
  3. XOFIGO [Suspect]
     Active Substance: RADIUM RA-223 DICHLORIDE
     Indication: METASTASES TO BONE
     Dosage: 55KBQ/KG ONCE
     Route: 042
     Dates: start: 20170817, end: 20170817
  4. XOFIGO [Suspect]
     Active Substance: RADIUM RA-223 DICHLORIDE
     Indication: METASTASES TO BONE
     Dosage: 55KBQ/KG ONCE
     Route: 042
     Dates: start: 20170914, end: 20170914

REACTIONS (4)
  - Hormone-refractory prostate cancer [Fatal]
  - Platelet count decreased [Recovering/Resolving]
  - Red blood cell count decreased [Recovering/Resolving]
  - General physical health deterioration [None]

NARRATIVE: CASE EVENT DATE: 20170917
